FAERS Safety Report 9278237 (Version 3)
Quarter: 2013Q3

REPORT INFORMATION
  Report Type: Spontaneous
  Country: US (occurrence: US)
  Receive Date: 20130508
  Receipt Date: 20130813
  Transmission Date: 20140515
  Serious: Yes (Hospitalization)
  Sender: FDA-Public Use
  Company Number: US-GENZYME-FABR-1003222

PATIENT
  Sex: Male
  Weight: 110 kg

DRUGS (1)
  1. FABRAZYME [Suspect]
     Indication: FABRY^S DISEASE
     Dosage: 0.9 MG/KG, Q2W
     Route: 042
     Dates: start: 20090415

REACTIONS (1)
  - Aortic dilatation [Recovered/Resolved]
